FAERS Safety Report 8567044 (Version 3)
Quarter: 2016Q3

REPORT INFORMATION
  Report Type: Spontaneous
  Country: DE (occurrence: DE)
  Receive Date: 20120517
  Receipt Date: 20160901
  Transmission Date: 20161109
  Serious: Yes (Congenital Anomaly, Other)
  Sender: FDA-Public Use
  Company Number: DE-BRISTOL-MYERS SQUIBB COMPANY-16577207

PATIENT
  Sex: Male
  Weight: 2.01 kg

DRUGS (1)
  1. BARACLUDE [Suspect]
     Active Substance: ENTECAVIR
     Indication: PRODUCT USED FOR UNKNOWN INDICATION
     Dosage: UNK
     Route: 050

REACTIONS (3)
  - Developmental delay [Unknown]
  - Cockayne^s syndrome [Not Recovered/Not Resolved]
  - Exposure via father [Unknown]

NARRATIVE: CASE EVENT DATE: 20090430
